FAERS Safety Report 9692593 (Version 1)
Quarter: 2013Q4

REPORT INFORMATION
  Report Type: Spontaneous
  Country: US (occurrence: None)
  Receive Date: 20131115
  Receipt Date: 20131115
  Transmission Date: 20140711
  Serious: No
  Sender: FDA-Public Use
  Company Number: None

PATIENT
  Age: 68 Year
  Sex: Female
  Weight: 51.26 kg

DRUGS (1)
  1. TRAZODONE [Suspect]
     Route: 048

REACTIONS (6)
  - Nightmare [None]
  - Abnormal dreams [None]
  - Sleep disorder [None]
  - Drug ineffective [None]
  - Product substitution issue [None]
  - Product quality issue [None]
